FAERS Safety Report 7031202-6 (Version None)
Quarter: 2010Q4

REPORT INFORMATION
  Report Type: 
  Country: None (occurrence: None)
  Receive Date: 20101006
  Receipt Date: 20100930
  Transmission Date: 20110411
  Serious: Yes (Hospitalization)
  Sender: FDA-Public Use
  Company Number: A0555076A

PATIENT
  Sex: Female
  Weight: 65 kg

DRUGS (7)
  1. AVANDIA [Suspect]
     Dosage: 4MG PER DAY
     Route: 048
     Dates: start: 20050101, end: 20100928
  2. AVANDAMET [Suspect]
     Dosage: 1TAB PER DAY
     Route: 065
     Dates: start: 20091001, end: 20091001
  3. METFORMIN HYDROCHLORIDE [Concomitant]
     Dosage: 1TAB THREE TIMES PER DAY
     Dates: start: 20050101
  4. RIVOTRIL [Concomitant]
  5. SIMVASTATIN [Concomitant]
     Route: 048
  6. INSULIN [Concomitant]
     Dosage: 10UNIT AT NIGHT
     Route: 058
     Dates: start: 20080101
  7. METFORMIN [Concomitant]
     Dosage: 800MG THREE TIMES PER DAY
     Route: 048
     Dates: start: 20020101

REACTIONS (4)
  - CARDIOVASCULAR DISORDER [None]
  - DRUG INEFFECTIVE [None]
  - HYPERGLYCAEMIA [None]
  - PRODUCT QUALITY ISSUE [None]
